FAERS Safety Report 7639917-3 (Version None)
Quarter: 2011Q3

REPORT INFORMATION
  Report Type: 
  Country: None (occurrence: None)
  Receive Date: 20110727
  Receipt Date: 20110718
  Transmission Date: 20111222
  Serious: Yes (Hospitalization)
  Sender: FDA-Public Use
  Company Number: FR-ASTRAZENECA-2011SE38935

PATIENT
  Age: 51 Year
  Sex: Female

DRUGS (9)
  1. INDAPAMIDE [Concomitant]
  2. AXELER [Suspect]
     Indication: HYPERTENSION
     Route: 048
     Dates: start: 20110324, end: 20110415
  3. LYRICA [Suspect]
     Indication: NEUROPATHY PERIPHERAL
     Route: 048
     Dates: start: 20100212, end: 20110415
  4. BIOCALYPTOL [Concomitant]
  5. NEBIVOLOL HCL [Concomitant]
     Dates: start: 20110324
  6. LANTUS [Concomitant]
  7. CRESTOR [Suspect]
     Indication: HYPERCHOLESTEROLAEMIA
     Route: 048
     Dates: start: 20091006, end: 20110415
  8. GLIMEPIRIDE [Concomitant]
  9. ACETAMINOPHEN [Concomitant]

REACTIONS (1)
  - HEPATITIS CHOLESTATIC [None]
